FAERS Safety Report 8960514 (Version 1)
Quarter: 2012Q4

REPORT INFORMATION
  Report Type: Spontaneous
  Country: US (occurrence: None)
  Receive Date: 20121207
  Receipt Date: 20121207
  Transmission Date: 20130627
  Serious: Yes (Disabling, Other)
  Sender: FDA-Public Use
  Company Number: None

PATIENT
  Sex: Female
  Weight: 102.06 kg

DRUGS (1)
  1. MIRENA IUD [Suspect]
     Indication: BIRTH CONTROL
     Route: 015
     Dates: start: 20100201, end: 20110723

REACTIONS (16)
  - Pain [None]
  - Post procedural haemorrhage [None]
  - Weight increased [None]
  - Migraine [None]
  - Mood swings [None]
  - Seborrhoea [None]
  - Dizziness [None]
  - Secretion discharge [None]
  - Menorrhagia [None]
  - Dysmenorrhoea [None]
  - Fall [None]
  - Infertility female [None]
  - Endometriosis [None]
  - Fallopian tube disorder [None]
  - Scar [None]
  - Pelvic inflammatory disease [None]
